FAERS Safety Report 18728846 (Version 1)
Quarter: 2021Q1

REPORT INFORMATION
  Report Type: Spontaneous
  Country: US (occurrence: US)
  Receive Date: 20210112
  Receipt Date: 20210112
  Transmission Date: 20210419
  Serious: No
  Sender: FDA-Public Use
  Company Number: US-ASTRAZENECA-2021A004341

PATIENT
  Age: 77 Year
  Sex: Female

DRUGS (1)
  1. NEXIUM 24HR CLEARMINIS [Suspect]
     Active Substance: ESOMEPRAZOLE MAGNESIUM
     Dosage: 40 MG, 1X/DAY (20 MGS EACH PILL AND I TAKE 40/2 PILLS ONCE A DAY)
     Route: 048

REACTIONS (3)
  - Off label use [Unknown]
  - Hiatus hernia [Unknown]
  - Product packaging issue [Unknown]
